FAERS Safety Report 9322387 (Version 1)
Quarter: 2013Q2

REPORT INFORMATION
  Report Type: Spontaneous
  Country: US (occurrence: US)
  Receive Date: 20130531
  Receipt Date: 20130531
  Transmission Date: 20140414
  Serious: No
  Sender: FDA-Public Use
  Company Number: US-TARO-2012P1066264

PATIENT
  Age: 52 Year
  Sex: Female
  Weight: 81.65 kg

DRUGS (2)
  1. CLOTRIMAZOLE VAGINAL CREAM USP 2% 3 DAY [Suspect]
     Indication: FUNGAL INFECTION
     Route: 067
     Dates: start: 20121123, end: 20121125
  2. AUGMENTIN [Concomitant]
     Indication: PHARYNGITIS

REACTIONS (1)
  - Drug ineffective [Not Recovered/Not Resolved]
